FAERS Safety Report 12264145 (Version 1)
Quarter: 2016Q2

REPORT INFORMATION
  Report Type: Spontaneous
  Country: US (occurrence: US)
  Receive Date: 20160413
  Receipt Date: 20160413
  Transmission Date: 20160815
  Serious: No
  Sender: FDA-Public Use
  Company Number: US-JNJFOC-20160327947

PATIENT
  Age: 14 Year
  Sex: Male
  Weight: 56.7 kg

DRUGS (8)
  1. MOTRIN [Suspect]
     Active Substance: IBUPROFEN
     Indication: APPLICATION SITE SWELLING
     Route: 065
  2. BENADRYL [Suspect]
     Active Substance: DIPHENHYDRAMINE HYDROCHLORIDE
     Indication: APPLICATION SITE BURN
     Route: 065
  3. BENADRYL [Suspect]
     Active Substance: DIPHENHYDRAMINE HYDROCHLORIDE
     Indication: APPLICATION SITE RASH
     Route: 065
  4. MOTRIN [Suspect]
     Active Substance: IBUPROFEN
     Indication: APPLICATION SITE BURN
     Route: 065
  5. MOTRIN [Suspect]
     Active Substance: IBUPROFEN
     Indication: APPLICATION SITE RASH
     Route: 065
  6. BENADRYL [Suspect]
     Active Substance: DIPHENHYDRAMINE HYDROCHLORIDE
     Indication: APPLICATION SITE REACTION
     Route: 065
  7. BENADRYL [Suspect]
     Active Substance: DIPHENHYDRAMINE HYDROCHLORIDE
     Indication: APPLICATION SITE SWELLING
     Route: 065
  8. MOTRIN [Suspect]
     Active Substance: IBUPROFEN
     Indication: APPLICATION SITE REACTION
     Route: 065

REACTIONS (2)
  - Off label use [Unknown]
  - Product use issue [Unknown]
